FAERS Safety Report 14710494 (Version 1)
Quarter: 2018Q2

REPORT INFORMATION
  Report Type: Report from Study
  Country: BR (occurrence: BR)
  Receive Date: 20180403
  Receipt Date: 20180403
  Transmission Date: 20180711
  Serious: Yes (Other)
  Sender: FDA-Public Use
  Company Number: PHHY2018BR058297

PATIENT
  Age: 87 Year
  Sex: Female
  Weight: 90 kg

DRUGS (1)
  1. EXELON PATCH [Suspect]
     Active Substance: RIVASTIGMINE
     Indication: PRODUCT USED FOR UNKNOWN INDICATION
     Dosage: 0.5 DF (4.6 MG), QD (NIGHT), PATCH 5 (CM2)
     Route: 062
     Dates: start: 201802

REACTIONS (5)
  - Wrong technique in product usage process [Unknown]
  - Application site erythema [Recovering/Resolving]
  - Hallucination [Recovering/Resolving]
  - Delirium [Recovering/Resolving]
  - Urinary tract infection [Recovering/Resolving]

NARRATIVE: CASE EVENT DATE: 201802
